FAERS Safety Report 24005468 (Version 1)
Quarter: 2024Q2

REPORT INFORMATION
  Report Type: Report from Study
  Country: BE (occurrence: BE)
  Receive Date: 20240624
  Receipt Date: 20240624
  Transmission Date: 20240717
  Serious: Yes (Other)
  Sender: FDA-Public Use
  Company Number: BE-JNJFOC-20240646090

PATIENT
  Age: 73 Year
  Sex: Female
  Weight: 84 kg

DRUGS (5)
  1. AMIVANTAMAB [Suspect]
     Active Substance: AMIVANTAMAB
     Indication: Lung neoplasm malignant
     Route: 042
     Dates: start: 20230719, end: 20240614
  2. DVITAL [Concomitant]
     Route: 048
  3. XGEVA [Concomitant]
     Active Substance: DENOSUMAB
     Route: 058
  4. VALSARTAN [Concomitant]
     Active Substance: VALSARTAN
     Route: 048
  5. PANTOPRAZOLE SODIUM [Concomitant]
     Active Substance: PANTOPRAZOLE SODIUM
     Route: 048

REACTIONS (1)
  - Hepatitis toxic [Unknown]

NARRATIVE: CASE EVENT DATE: 20240606
